FAERS Safety Report 4501007-6 (Version None)
Quarter: 2004Q4

REPORT INFORMATION
  Report Type: 
  Country: None (occurrence: None)
  Receive Date: 20041115
  Receipt Date: 20041102
  Transmission Date: 20050328
  Serious: Yes (Hospitalization)
  Sender: FDA-Public Use
  Company Number: FR-GLAXOSMITHKLINE-B0350288A

PATIENT
  Age: 55 Year
  Sex: Male

DRUGS (5)
  1. ZOPHREN [Suspect]
     Indication: PROPHYLAXIS
     Route: 042
     Dates: start: 20040928, end: 20041001
  2. DEROXAT [Suspect]
     Dosage: 20MG PER DAY
     Route: 048
     Dates: start: 20040816, end: 20041001
  3. ALKERAN [Suspect]
     Route: 042
     Dates: start: 20040928, end: 20040929
  4. RADIOTHERAPY [Concomitant]
     Indication: MULTIPLE MYELOMA
     Dates: start: 20040818, end: 20040824
  5. XANAX [Concomitant]
     Route: 065
     Dates: start: 20040816, end: 20041001

REACTIONS (4)
  - EPILEPSY [None]
  - INSOMNIA [None]
  - MYOCLONUS [None]
  - TREMOR [None]
